FAERS Safety Report 5584123-X (Version None)
Quarter: 2008Q1

REPORT INFORMATION
  Report Type: 
  Country: None (occurrence: None)
  Receive Date: 20080108
  Receipt Date: 20080102
  Transmission Date: 20080703
  Serious: Yes (Hospitalization)
  Sender: FDA-Public Use
  Company Number: CA-ASTRAZENECA-2008UW00143

PATIENT
  Age: 70 Year
  Sex: Male

DRUGS (8)
  1. NEXIUM [Suspect]
     Indication: REFLUX OESOPHAGITIS
     Route: 048
     Dates: start: 20060101
  2. LOSEC I.V. [Concomitant]
     Indication: REFLUX OESOPHAGITIS
     Route: 048
  3. PANTOLOC [Concomitant]
  4. ZANTAC [Concomitant]
  5. VITAMIN E [Concomitant]
  6. ASCORBIC ACID [Concomitant]
  7. CORTISONE ACETATE TAB [Concomitant]
     Indication: COLITIS
     Route: 061
  8. ROLAIDS [Concomitant]
     Indication: REFLUX OESOPHAGITIS

REACTIONS (5)
  - BLADDER SPASM [None]
  - DRUG INEFFECTIVE [None]
  - IMPAIRED HEALING [None]
  - PROSTATIC OPERATION [None]
  - VISION BLURRED [None]
